FAERS Safety Report 24962668 (Version 2)
Quarter: 2025Q1

REPORT INFORMATION
  Report Type: Spontaneous
  Country: JP (occurrence: JP)
  Receive Date: 20250212
  Receipt Date: 20250220
  Transmission Date: 20250409
  Serious: Yes (Hospitalization, Other)
  Sender: GLAXOSMITHKLINE
  Company Number: JP-GSKNCCC-Case-02218811_AE-93708

PATIENT

DRUGS (5)
  1. SERETIDE [Suspect]
     Active Substance: FLUTICASONE PROPIONATE\SALMETEROL XINAFOATE
     Indication: Asthma
     Dosage: BID, 1 INHALATION PER DOSE
  2. SERETIDE [Suspect]
     Active Substance: FLUTICASONE PROPIONATE\SALMETEROL XINAFOATE
     Indication: Asthma
     Dates: start: 20250204
  3. PREDONINE [Concomitant]
     Active Substance: PREDNISOLONE
     Indication: Asthma
  4. THEO-DUR [Concomitant]
     Active Substance: THEOPHYLLINE ANHYDROUS
  5. MONTELUKAST [Concomitant]
     Active Substance: MONTELUKAST

REACTIONS (4)
  - Immobile [Unknown]
  - Back pain [Recovering/Resolving]
  - Overdose [Unknown]
  - Off label use [Unknown]
